FAERS Safety Report 11070980 (Version 2)
Quarter: 2015Q2

REPORT INFORMATION
  Report Type: Report from Study
  Country: GB (occurrence: GB)
  Receive Date: 20150428
  Receipt Date: 20150429
  Transmission Date: 20150821
  Serious: Yes (Hospitalization)
  Sender: FDA-Public Use
  Company Number: GB-ABBVIE-15K-167-1379802-00

PATIENT
  Sex: Female
  Weight: 130 kg

DRUGS (8)
  1. CALCICHEW D3 FORTE [Concomitant]
     Active Substance: CALCIUM\CHOLECALCIFEROL
     Indication: PRODUCT USED FOR UNKNOWN INDICATION
     Dates: start: 20081112
  2. BUDESONIDE. [Concomitant]
     Active Substance: BUDESONIDE
     Indication: PRODUCT USED FOR UNKNOWN INDICATION
     Dates: start: 20081112
  3. QUININE SULPHATE [Concomitant]
     Active Substance: QUININE SULFATE
     Indication: PRODUCT USED FOR UNKNOWN INDICATION
     Dates: start: 20081112
  4. TRAZODONE [Concomitant]
     Active Substance: TRAZODONE HYDROCHLORIDE
     Indication: PRODUCT USED FOR UNKNOWN INDICATION
     Dates: start: 20081112
  5. TIOTROPIUM [Concomitant]
     Active Substance: TIOTROPIUM
     Indication: PRODUCT USED FOR UNKNOWN INDICATION
     Dates: start: 20081112
  6. AZITHROMYCIN [Concomitant]
     Active Substance: AZITHROMYCIN ANHYDROUS
     Indication: PRODUCT USED FOR UNKNOWN INDICATION
     Dates: start: 20090317
  7. HUMIRA [Suspect]
     Active Substance: ADALIMUMAB
     Indication: PSORIASIS
     Route: 058
     Dates: start: 20081111
  8. FUROSEMIDE. [Concomitant]
     Active Substance: FUROSEMIDE
     Indication: PRODUCT USED FOR UNKNOWN INDICATION
     Dates: start: 20081112

REACTIONS (2)
  - Peripheral embolism [Recovered/Resolved]
  - Peripheral ischaemia [Unknown]
